FAERS Safety Report 12000886 (Version 4)
Quarter: 2016Q2

REPORT INFORMATION
  Report Type: Spontaneous
  Country: US (occurrence: US)
  Receive Date: 20160204
  Receipt Date: 20160411
  Transmission Date: 20160815
  Serious: Yes (Hospitalization, Other)
  Sender: FDA-Public Use
  Company Number: US-GLAXOSMITHKLINE-US2016015287

PATIENT
  Age: 56 Year
  Sex: Male
  Weight: 74.38 kg

DRUGS (10)
  1. ASPIRIN (BABY) [Concomitant]
     Active Substance: ASPIRIN
  2. SYMBICORT [Concomitant]
     Active Substance: BUDESONIDE\FORMOTEROL FUMARATE DIHYDRATE
  3. SINGULAIR [Concomitant]
     Active Substance: MONTELUKAST SODIUM
  4. ATORVASTATIN [Concomitant]
     Active Substance: ATORVASTATIN
  5. VENTOLIN HFA [Suspect]
     Active Substance: ALBUTEROL SULFATE
     Indication: LUNG DISORDER
     Dosage: 2 PUFF(S), PRN
  6. XYZAL [Concomitant]
     Active Substance: LEVOCETIRIZINE DIHYDROCHLORIDE
  7. ATENOLOL. [Concomitant]
     Active Substance: ATENOLOL
  8. VENTOLIN HFA [Suspect]
     Active Substance: ALBUTEROL SULFATE
     Indication: DYSPNOEA
     Dosage: 2 PUFF(S), QID
     Dates: start: 2014
  9. KLONOPIN [Concomitant]
     Active Substance: CLONAZEPAM
  10. TRIAMTERENE-HCTZ [Concomitant]
     Active Substance: HYDROCHLOROTHIAZIDE\TRIAMTERENE

REACTIONS (22)
  - Device use error [Unknown]
  - Vomiting [Recovered/Resolved]
  - Erythema [Unknown]
  - Oropharyngeal pain [Unknown]
  - Dysphonia [Unknown]
  - Condition aggravated [Unknown]
  - Retching [Unknown]
  - Medical diet [Unknown]
  - Lung disorder [Unknown]
  - Asthma [Unknown]
  - Coronary artery bypass [Recovering/Resolving]
  - Blood pressure increased [Not Recovered/Not Resolved]
  - Cough [Not Recovered/Not Resolved]
  - Foreign body [Unknown]
  - Dyspnoea [Unknown]
  - Chest pain [Unknown]
  - Palpitations [Unknown]
  - Dysphonia [Unknown]
  - Product quality issue [Unknown]
  - Pharyngeal erythema [Unknown]
  - Laryngeal oedema [Not Recovered/Not Resolved]
  - Larynx irritation [Not Recovered/Not Resolved]

NARRATIVE: CASE EVENT DATE: 20141114
